FAERS Safety Report 21561443 (Version 2)
Quarter: 2022Q4

REPORT INFORMATION
  Report Type: Report from Study
  Country: US (occurrence: US)
  Receive Date: 20221107
  Receipt Date: 20221226
  Transmission Date: 20230113
  Serious: No
  Sender: FDA-Public Use
  Company Number: US-ABBVIE-4135636

PATIENT
  Sex: Female

DRUGS (2)
  1. HUMIRA [Suspect]
     Active Substance: ADALIMUMAB
     Indication: Rheumatoid arthritis
     Route: 058
  2. MODERNA COVID-19 VACCINE [Concomitant]
     Active Substance: ELASOMERAN
     Indication: COVID-19 immunisation
     Dosage: FREQUENCY: ONE IN ONCE
     Route: 030

REACTIONS (8)
  - Fatigue [Recovered/Resolved]
  - Rheumatoid arthritis [Unknown]
  - Rash pruritic [Recovering/Resolving]
  - Injection site pruritus [Recovered/Resolved]
  - Rash [Recovering/Resolving]
  - Injection site swelling [Unknown]
  - Injection site rash [Unknown]
  - Loss of personal independence in daily activities [Unknown]
